FAERS Safety Report 18294624 (Version 2)
Quarter: 2020Q4

REPORT INFORMATION
  Report Type: Spontaneous
  Country: US (occurrence: US)
  Receive Date: 20200922
  Receipt Date: 20201002
  Transmission Date: 20210113
  Serious: Yes (Death, Other)
  Sender: FDA-Public Use
  Company Number: US-PFIZER INC-2020363140

PATIENT
  Age: 35 Year
  Sex: Female
  Weight: 165 kg

DRUGS (13)
  1. DEXTROMETHORPHAN HYDROBROMIDE. [Suspect]
     Active Substance: DEXTROMETHORPHAN HYDROBROMIDE
     Dosage: UNK
  2. AMITRIPTYLINE [Suspect]
     Active Substance: AMITRIPTYLINE
     Dosage: 100 MG (3-QD PM)
  3. TEMAZEPAM. [Suspect]
     Active Substance: TEMAZEPAM
     Dosage: 30 MG (2-QD PM)
  4. COCAINE [Suspect]
     Active Substance: COCAINE
     Dosage: UNK
  5. ALPRAZOLAM. [Suspect]
     Active Substance: ALPRAZOLAM
     Dosage: 1.0 MG, 4X/DAY
  6. SEROQUEL [Suspect]
     Active Substance: QUETIAPINE FUMARATE
     Dosage: 100 MG, 3X/DAY
  7. BENZOYLECGONINE [Suspect]
     Active Substance: BENZOYLECGONINE
     Dosage: UNK
  8. PROMETHAZINE [Suspect]
     Active Substance: PROMETHAZINE HYDROCHLORIDE
     Dosage: UNK
  9. AMITRIPTYLINE [Suspect]
     Active Substance: AMITRIPTYLINE
     Dosage: 50 MG (2-QD PM)
  10. NORPROPOXYPHENE [Suspect]
     Active Substance: NORPROPOXYPHENE
     Dosage: UNK
  11. SEROQUEL [Suspect]
     Active Substance: QUETIAPINE FUMARATE
     Dosage: 100 MG, 2X/DAY
  12. PROPOXYPHENE. [Suspect]
     Active Substance: PROPOXYPHENE
     Dosage: 100 MG, 4X/DAY
  13. NORTRIPTYLINE [Suspect]
     Active Substance: NORTRIPTYLINE
     Dosage: UNK

REACTIONS (3)
  - Intentional overdose [Fatal]
  - Completed suicide [Fatal]
  - Toxicity to various agents [Fatal]
